FAERS Safety Report 7900786-5 (Version None)
Quarter: 2011Q4

REPORT INFORMATION
  Report Type: 
  Country: None (occurrence: None)
  Receive Date: 20111108
  Receipt Date: 20111028
  Transmission Date: 20120403
  Serious: Yes (Other)
  Sender: FDA-Public Use
  Company Number: JP-ASTELLAS-2011JP007900

PATIENT
  Age: 31 Year
  Sex: Male
  Weight: 86.2 kg

DRUGS (35)
  1. TACROLIMUS [Suspect]
     Dosage: 1.5 MG, BID
     Route: 048
     Dates: start: 20110302, end: 20110315
  2. PREDNISOLONE [Concomitant]
     Dosage: 20 MG, UNKNOWN/D
     Route: 048
     Dates: start: 20101230, end: 20110104
  3. PREDNISOLONE [Concomitant]
     Dosage: 2.5 MG, UNKNOWN/D
     Route: 048
     Dates: start: 20110302, end: 20110315
  4. PREDNISOLONE [Concomitant]
     Dosage: 7.5 MG, UNKNOWN/D
     Route: 048
     Dates: start: 20110427, end: 20110524
  5. CEFAZOLIN SODIUM [Concomitant]
     Dosage: 3000 MG, UNKNOWN/D
     Route: 048
  6. AKINETON [Concomitant]
     Dosage: 2 MG, UNKNOWN/D
     Route: 048
  7. PREDNISOLONE [Concomitant]
     Dosage: 40 MG, UNKNOWN/D
     Route: 048
     Dates: start: 20101209, end: 20101215
  8. FAMOTIDINE [Concomitant]
     Dosage: 40 MG, UNKNOWN/D
     Route: 048
  9. TACROLIMUS [Suspect]
     Indication: COLITIS ULCERATIVE
     Dosage: 2.5 MG, BID
     Route: 048
     Dates: start: 20101215, end: 20101222
  10. TACROLIMUS [Suspect]
     Dosage: 2 MG, BID
     Route: 048
     Dates: start: 20101202, end: 20101202
  11. TACROLIMUS [Suspect]
     Dosage: 3 MG, BID
     Route: 048
     Dates: start: 20101206, end: 20101208
  12. TACROLIMUS [Suspect]
     Dosage: 4 MG, BID
     Route: 048
     Dates: start: 20101208, end: 20101214
  13. TACROLIMUS [Suspect]
     Dosage: 2 MG, BID
     Route: 048
     Dates: start: 20110105, end: 20110118
  14. PREDNISOLONE [Concomitant]
     Dosage: 10 MG, UNKNOWN/D
     Route: 048
     Dates: start: 20110119, end: 20110201
  15. IMURAN [Concomitant]
     Dosage: 50 MG, UNKNOWN/D
     Route: 048
     Dates: start: 20110223, end: 20110329
  16. IMURAN [Concomitant]
     Dosage: 100 MG, UNKNOWN/D
     Route: 048
     Dates: start: 20110720
  17. PREDNISOLONE [Concomitant]
     Dosage: 30 MG, UNKNOWN/D
     Route: 048
     Dates: start: 20101216, end: 20101222
  18. PREDNISOLONE [Concomitant]
     Dosage: 5 MG, UNKNOWN/D
     Route: 048
     Dates: start: 20110216, end: 20110301
  19. HALOPERIDOL [Concomitant]
     Dosage: 6 MG, UNKNOWN/D
     Route: 048
     Dates: end: 20101228
  20. HALOPERIDOL [Concomitant]
     Dosage: 6 MG, UNKNOWN/D
     Route: 048
     Dates: start: 20101229
  21. IMURAN [Concomitant]
     Indication: COLITIS ULCERATIVE
     Dosage: 25 MG, UNKNOWN/D
     Route: 048
     Dates: start: 20110216, end: 20110222
  22. PREDNISOLONE [Concomitant]
     Dosage: 25 MG, UNKNOWN/D
     Route: 048
     Dates: start: 20101223, end: 20101229
  23. TACROLIMUS [Suspect]
     Dosage: 1.5 MG, BID
     Route: 048
     Dates: start: 20101223, end: 20110104
  24. PENTASA [Concomitant]
     Indication: COLITIS ULCERATIVE
     Dosage: 4 MG, UNKNOWN/D
     Route: 048
  25. PREDNISOLONE [Concomitant]
     Dosage: 10 MG, UNKNOWN/D
     Route: 048
     Dates: start: 20110413, end: 20110426
  26. PREDNISOLONE [Concomitant]
     Dosage: 5 MG, UNKNOWN/D
     Route: 048
     Dates: start: 20110525, end: 20110621
  27. TACROLIMUS [Suspect]
     Dosage: 2.5 MG, BID
     Route: 048
     Dates: start: 20101203, end: 20101206
  28. TACROLIMUS [Suspect]
     Dosage: 2.5 MG, BID
     Route: 048
     Dates: start: 20110119, end: 20110301
  29. IMURAN [Concomitant]
     Dosage: 75 MG, UNKNOWN/D
     Route: 048
     Dates: start: 20110330, end: 20110719
  30. PREDNISOLONE [Concomitant]
     Indication: COLITIS ULCERATIVE
     Dosage: 60 MG, UNKNOWN/D
     Route: 048
     Dates: start: 20101202, end: 20101208
  31. PREDNISOLONE [Concomitant]
     Dosage: 15 MG, UNKNOWN/D
     Route: 048
     Dates: start: 20110105, end: 20110118
  32. PREDNISOLONE [Concomitant]
     Dosage: 7.5 MG, UNKNOWN/D
     Route: 048
     Dates: start: 20110202, end: 20110215
  33. PREDNISOLONE [Concomitant]
     Dosage: 20 MG, UNKNOWN/D
     Route: 048
     Dates: start: 20110316, end: 20110329
  34. PREDNISOLONE [Concomitant]
     Dosage: 15 MG, UNKNOWN/D
     Route: 048
     Dates: start: 20110330, end: 20110412
  35. ABILIFY [Concomitant]
     Dosage: 12 MG, UNKNOWN/D
     Route: 048

REACTIONS (2)
  - C-REACTIVE PROTEIN INCREASED [None]
  - ENTERITIS INFECTIOUS [None]
